FAERS Safety Report 18405264 (Version 1)
Quarter: 2020Q4

REPORT INFORMATION
  Report Type: Spontaneous
  Country: US (occurrence: US)
  Receive Date: 20201020
  Receipt Date: 20201020
  Transmission Date: 20210114
  Serious: No
  Sender: FDA-Public Use
  Company Number: None

PATIENT
  Age: 90 Year
  Sex: Female
  Weight: 49.5 kg

DRUGS (15)
  1. VITAMINS A, C, E, -ZIN - COPPER [Concomitant]
  2. ACETAMINOPHEN. [Concomitant]
     Active Substance: ACETAMINOPHEN
  3. LEVOTHYROXINE. [Concomitant]
     Active Substance: LEVOTHYROXINE
  4. PHENYTOIN. [Concomitant]
     Active Substance: PHENYTOIN
  5. POTASSIUM [Concomitant]
     Active Substance: POTASSIUM
  6. CAPECITABINE. [Suspect]
     Active Substance: CAPECITABINE
     Indication: COLON CANCER
     Dosage: OTHER FREQUENCY:BID 14/21 DAYS;?
     Route: 048
     Dates: start: 20200701
  7. NYSTATIN. [Concomitant]
     Active Substance: NYSTATIN
  8. TRAMADOL. [Concomitant]
     Active Substance: TRAMADOL
  9. CALCITONIN [Concomitant]
     Active Substance: CALCITONIN
  10. OXYBUTYNIN. [Concomitant]
     Active Substance: OXYBUTYNIN CHLORIDE
  11. VITAMIN B12 [Concomitant]
     Active Substance: CYANOCOBALAMIN
  12. FUROSEMIDE. [Concomitant]
     Active Substance: FUROSEMIDE
  13. IRON [Concomitant]
     Active Substance: IRON
  14. LOMOTIL [Concomitant]
     Active Substance: ATROPINE SULFATE\DIPHENOXYLATE HYDROCHLORIDE
  15. VITAMIN D3 [Concomitant]
     Active Substance: CHOLECALCIFEROL

REACTIONS (2)
  - Therapy change [None]
  - Palmar-plantar erythrodysaesthesia syndrome [None]

NARRATIVE: CASE EVENT DATE: 20201020
